FAERS Safety Report 5684003-5 (Version None)
Quarter: 2008Q1

REPORT INFORMATION
  Report Type: 
  Country: None (occurrence: None)
  Receive Date: 20080328
  Receipt Date: 20080321
  Transmission Date: 20080703
  Serious: Yes (Life-Threatening)
  Sender: FDA-Public Use
  Company Number: JP-JNJFOC-20070205479

PATIENT
  Sex: Male
  Weight: 65 kg

DRUGS (17)
  1. REMICADE [Suspect]
     Route: 042
  2. REMICADE [Suspect]
     Route: 042
  3. REMICADE [Suspect]
     Route: 042
  4. REMICADE [Suspect]
     Route: 042
  5. REMICADE [Suspect]
     Route: 042
  6. REMICADE [Suspect]
     Route: 042
  7. REMICADE [Suspect]
     Route: 042
  8. REMICADE [Suspect]
     Route: 042
  9. REMICADE [Suspect]
     Route: 042
  10. REMICADE [Suspect]
     Route: 042
  11. REMICADE [Suspect]
     Route: 042
  12. REMICADE [Suspect]
     Indication: CROHN'S DISEASE
     Route: 042
  13. PENTASA [Suspect]
     Indication: CROHN'S DISEASE
     Route: 048
  14. ENSURE [Suspect]
     Indication: NUTRITIONAL SUPPORT
     Route: 048
  15. MIYA BM [Suspect]
     Indication: FLATULENCE
     Route: 048
  16. LENDORMIN [Suspect]
     Indication: INSOMNIA
     Route: 048
  17. POSTERISAN [Suspect]
     Indication: ANAL INFLAMMATION

REACTIONS (12)
  - ABDOMINAL WALL MASS [None]
  - ADENOCARCINOMA [None]
  - BONE NEOPLASM [None]
  - CARCINOEMBRYONIC ANTIGEN INCREASED [None]
  - EYELID PTOSIS [None]
  - HEPATIC MASS [None]
  - HYPOAESTHESIA [None]
  - MASS [None]
  - MUSCLE MASS [None]
  - RENAL IMPAIRMENT [None]
  - SEASONAL ALLERGY [None]
  - SPLEEN DISORDER [None]
